FAERS Safety Report 10010582 (Version 7)
Quarter: 2014Q2

REPORT INFORMATION
  Report Type: Report from Study
  Country: DE (occurrence: DE)
  Receive Date: 20140314
  Receipt Date: 20140516
  Transmission Date: 20141212
  Serious: Yes (Life-Threatening, Hospitalization)
  Sender: FDA-Public Use
  Company Number: DE-ROCHE-1354830

PATIENT
  Age: 64 Year
  Sex: Female
  Weight: 72 kg

DRUGS (37)
  1. OBINUTUZUMAB [Suspect]
     Indication: CHRONIC LYMPHOCYTIC LEUKAEMIA
     Dosage: C1D1; 70 MG/M2.?DATE OF LAST DOSE PRIOR TO SAE: 17/FEB/2014.?TEMPORARILY INTERRUPTED
     Route: 042
     Dates: start: 20140120, end: 20140218
  2. PREDNISOLONE [Concomitant]
     Route: 042
     Dates: start: 20140120
  3. PREDNISOLONE [Concomitant]
     Dosage: SINGLE DOSE
     Route: 042
     Dates: start: 20140217, end: 20140217
  4. INTRATECT [Concomitant]
     Route: 042
     Dates: start: 20110926
  5. INTRATECT [Concomitant]
     Route: 042
     Dates: start: 20140108
  6. ATACAND [Concomitant]
     Route: 048
     Dates: start: 20140108
  7. L-THYROXIN [Concomitant]
     Route: 048
     Dates: start: 20140108
  8. L-THYROXIN [Concomitant]
     Route: 065
     Dates: start: 20140218
  9. DIHYDROTACHYSTEROL [Concomitant]
     Dosage: 10 PEARLS, SINGLE DOSE
     Route: 048
     Dates: start: 20140108
  10. DIHYDROTACHYSTEROL [Concomitant]
     Route: 065
     Dates: start: 20140218
  11. LOSFERRON [Concomitant]
     Dosage: 2 EFFERVESCENT TABLET
     Route: 048
     Dates: start: 20140108
  12. LOSFERRON [Concomitant]
     Dosage: 2 EFFERVESCENT TABLET
     Route: 065
     Dates: start: 20140218
  13. RANITIDIN [Concomitant]
     Indication: PROPHYLAXIS
     Route: 042
     Dates: start: 20140120
  14. PARACETAMOL [Concomitant]
     Indication: PROPHYLAXIS
     Route: 048
     Dates: start: 20140120
  15. FENISTIL (GERMANY) [Concomitant]
     Indication: PROPHYLAXIS
     Route: 042
     Dates: start: 20140120
  16. FENISTIL (GERMANY) [Concomitant]
     Dosage: SINGLE DOSE
     Route: 042
     Dates: start: 20140217, end: 20140217
  17. ONDANSETRON [Concomitant]
     Route: 042
     Dates: start: 20140121
  18. SULFAMETHOXAZOLE/TRIMETHOPRIM [Concomitant]
     Route: 048
     Dates: start: 20140120
  19. E153 [Concomitant]
     Route: 042
     Dates: start: 20140120
  20. E153 [Concomitant]
     Dosage: SINGLE DOSE
     Route: 042
     Dates: start: 20140217, end: 20140217
  21. FASTURTEC [Concomitant]
     Indication: PROPHYLAXIS
     Route: 042
     Dates: start: 20140120
  22. NEULASTA [Concomitant]
     Route: 058
     Dates: start: 20140123, end: 20140123
  23. NEULASTA [Concomitant]
     Route: 058
     Dates: start: 20140131, end: 20140131
  24. FERRITIN [Concomitant]
     Dosage: 2 EFFERVESCENT TABLET
     Route: 048
     Dates: start: 20140108
  25. RANITIC [Concomitant]
     Dosage: SINGLE DOSE
     Route: 042
     Dates: start: 20140217, end: 20140217
  26. ACICLOVIR [Concomitant]
     Route: 065
     Dates: start: 20140122
  27. ACICLOVIR [Concomitant]
     Route: 048
     Dates: start: 20140122
  28. ACICLOVIR [Concomitant]
     Route: 065
     Dates: start: 20140222
  29. FLUCONAZOLE [Concomitant]
     Route: 065
     Dates: start: 20140122, end: 20140203
  30. PANTOPRAZOL [Concomitant]
     Route: 048
     Dates: start: 20140203
  31. AMLODIPIN [Concomitant]
     Route: 048
     Dates: start: 20140203, end: 20140227
  32. ASS [Concomitant]
     Route: 048
     Dates: start: 20140203
  33. SIMVASTATIN [Concomitant]
     Route: 048
     Dates: start: 20140203
  34. PENTACARINAT [Concomitant]
     Dosage: SINGLE DOSE
     Route: 045
     Dates: start: 20140213, end: 20140213
  35. VALSARTAN [Concomitant]
     Route: 048
     Dates: start: 20140108, end: 20140227
  36. NEUPOGEN [Concomitant]
     Route: 065
     Dates: start: 20140221, end: 20140227
  37. PENTAGLOBIN [Concomitant]
     Route: 065
     Dates: start: 20140221, end: 20140227

REACTIONS (2)
  - Pancytopenia [Recovered/Resolved]
  - C-reactive protein increased [Recovered/Resolved]
